FAERS Safety Report 16547824 (Version 1)
Quarter: 2019Q3

REPORT INFORMATION
  Report Type: Spontaneous
  Country: US (occurrence: US)
  Receive Date: 20190709
  Receipt Date: 20190709
  Transmission Date: 20191004
  Serious: No
  Sender: FDA-Public Use
  Company Number: US-SA-2019SA181871

PATIENT
  Age: 59 Year
  Sex: Female

DRUGS (1)
  1. ALLEGRA ALLERGY [Suspect]
     Active Substance: FEXOFENADINE HYDROCHLORIDE
     Indication: HYPERSENSITIVITY
     Dosage: 180 UNK, QD
     Route: 065

REACTIONS (5)
  - Asthma [Unknown]
  - Cough [Unknown]
  - Malaise [Unknown]
  - Aphonia [Unknown]
  - Pyrexia [Unknown]

NARRATIVE: CASE EVENT DATE: 201104
